FAERS Safety Report 12857681 (Version 1)
Quarter: 2016Q4

REPORT INFORMATION
  Report Type: Spontaneous
  Country: US (occurrence: US)
  Receive Date: 20161018
  Receipt Date: 20161018
  Transmission Date: 20170207
  Serious: No
  Sender: FDA-Public Use
  Company Number: GXBR2016US002666

PATIENT
  Age: 85 Year
  Sex: Male
  Weight: 77.98 kg

DRUGS (1)
  1. METHYLPREDNISOLONE TABLETS USP [Suspect]
     Active Substance: METHYLPREDNISOLONE
     Indication: SCIATIC NERVE NEUROPATHY
     Dosage: 4 MG, UNK
     Route: 048
     Dates: start: 20160815, end: 20160821

REACTIONS (1)
  - Drug ineffective [Not Recovered/Not Resolved]

NARRATIVE: CASE EVENT DATE: 20160815
